FAERS Safety Report 5313180-0 (Version None)
Quarter: 2007Q2

REPORT INFORMATION
  Report Type: 
  Country: None (occurrence: None)
  Receive Date: 20070424
  Receipt Date: 20070412
  Transmission Date: 20071010
  Serious: Yes (Hospitalization)
  Sender: FDA-Public Use
  Company Number: 2007-157142-NL

PATIENT
  Sex: Male

DRUGS (1)
  1. MIRTAZAPINE [Suspect]
     Indication: DEPRESSION
     Dosage: 30 MG ORAL
     Route: 048

REACTIONS (4)
  - COMA [None]
  - CONFUSIONAL STATE [None]
  - MEMORY IMPAIRMENT [None]
  - RHABDOMYOLYSIS [None]
